FAERS Safety Report 8349548-8 (Version None)
Quarter: 2012Q2

REPORT INFORMATION
  Report Type: 
  Country: None (occurrence: None)
  Receive Date: 20120510
  Receipt Date: 20120501
  Transmission Date: 20120825
  Serious: Yes (Hospitalization, Other)
  Sender: FDA-Public Use
  Company Number: US-ASTRAZENECA-2011SE22029

PATIENT
  Age: 54 Year
  Sex: Female
  Weight: 69.4 kg

DRUGS (125)
  1. SEROQUEL [Suspect]
     Indication: SLEEP DISORDER
     Route: 048
     Dates: start: 19930101
  2. SEROQUEL [Suspect]
     Route: 048
     Dates: start: 19940101
  3. SEROQUEL [Suspect]
     Route: 048
     Dates: start: 19940101
  4. SEROQUEL [Suspect]
     Route: 048
     Dates: start: 20020101
  5. SEROQUEL [Suspect]
     Route: 048
  6. SEROQUEL [Suspect]
     Route: 048
  7. SEROQUEL [Suspect]
     Route: 048
  8. SEROQUEL [Suspect]
     Route: 048
  9. SEROQUEL [Suspect]
     Route: 048
  10. SEROQUEL [Suspect]
     Route: 048
  11. SEROQUEL [Suspect]
     Route: 048
     Dates: start: 20120201
  12. SEROQUEL [Suspect]
     Route: 048
  13. SEROQUEL [Suspect]
     Indication: ANXIETY
     Route: 048
     Dates: start: 19930101
  14. SEROQUEL [Suspect]
     Indication: AFFECTIVE DISORDER
     Route: 048
     Dates: start: 19930101
  15. SEROQUEL [Suspect]
     Route: 048
     Dates: start: 19940101
  16. SEROQUEL [Suspect]
     Route: 048
     Dates: start: 19940101
  17. SEROQUEL [Suspect]
     Route: 048
     Dates: start: 20020101
  18. SEROQUEL [Suspect]
     Route: 048
  19. SEROQUEL [Suspect]
     Route: 048
  20. SEROQUEL [Suspect]
     Route: 048
  21. SEROQUEL [Suspect]
     Route: 048
  22. SEROQUEL [Suspect]
     Route: 048
  23. SEROQUEL [Suspect]
     Route: 048
  24. SEROQUEL [Suspect]
     Route: 048
  25. SEROQUEL [Suspect]
     Route: 048
  26. NEXIUM [Suspect]
     Route: 048
  27. PRILOSEC OTC [Suspect]
     Route: 048
  28. ZONISANIDE [Concomitant]
  29. SEROQUEL [Suspect]
     Indication: DEPRESSION
     Route: 048
     Dates: start: 19930101
  30. SEROQUEL [Suspect]
     Indication: POST-TRAUMATIC STRESS DISORDER
     Route: 048
     Dates: start: 19930101
  31. SEROQUEL [Suspect]
     Route: 048
     Dates: start: 19940101
  32. SEROQUEL [Suspect]
     Route: 048
     Dates: start: 19940101
  33. SEROQUEL [Suspect]
     Route: 048
  34. SEROQUEL [Suspect]
     Route: 048
  35. SEROQUEL [Suspect]
     Route: 048
  36. SEROQUEL [Suspect]
     Route: 048
  37. SEROQUEL [Suspect]
     Route: 048
     Dates: start: 20020101
  38. SEROQUEL [Suspect]
     Route: 048
  39. SEROQUEL [Suspect]
     Route: 048
  40. SEROQUEL [Suspect]
     Route: 048
  41. SEROQUEL [Suspect]
     Route: 048
     Dates: start: 20120201
  42. SEROQUEL [Suspect]
     Route: 048
     Dates: start: 20120201
  43. SEROQUEL [Suspect]
     Route: 048
     Dates: start: 20120201
  44. SEROQUEL [Suspect]
     Route: 048
  45. SEROQUEL [Suspect]
     Route: 048
  46. SEROQUEL [Suspect]
     Route: 048
  47. DEPAKOTE [Concomitant]
     Dosage: 1000 MG IN THE MORNING AND 1000 MG IN THE EVENING AND 1000 MG AT NIGHT
     Route: 048
  48. SIMVASTATIN [Concomitant]
  49. ZENOGRAN [Concomitant]
     Indication: EPILEPSY
     Route: 048
  50. ZENOGRAN [Concomitant]
     Indication: HEADACHE
     Route: 048
  51. ZANAFLEX [Concomitant]
     Indication: EPILEPSY
     Route: 048
  52. DIVALPROEX SODIUM [Concomitant]
     Indication: EPILEPSY
  53. SEROQUEL [Suspect]
     Route: 048
     Dates: start: 19940101
  54. SEROQUEL [Suspect]
     Route: 048
     Dates: start: 20020101
  55. SEROQUEL [Suspect]
     Route: 048
  56. SEROQUEL [Suspect]
     Route: 048
  57. SEROQUEL [Suspect]
     Route: 048
     Dates: start: 20120201
  58. SEROQUEL [Suspect]
     Route: 048
     Dates: start: 20120201
  59. SEROQUEL [Suspect]
     Route: 048
  60. DEPAKOTE [Concomitant]
     Dosage: 1000MG IN THE MORNING AND 1000MG IN THE EVENING
     Route: 048
  61. EFFEXOR [Concomitant]
  62. FOLIC ACID [Concomitant]
     Indication: CARDIAC DISORDER
     Route: 048
  63. VIMPAC [Concomitant]
     Route: 048
  64. LASIX [Concomitant]
  65. VALIUM [Concomitant]
     Indication: AGITATION
     Route: 048
  66. ZANAFLEX [Concomitant]
     Indication: HEADACHE
     Route: 048
  67. VIIBRYD [Concomitant]
  68. SEROQUEL [Suspect]
     Route: 048
     Dates: start: 19930101
  69. SEROQUEL [Suspect]
     Route: 048
     Dates: start: 19940101
  70. SEROQUEL [Suspect]
     Route: 048
  71. SEROQUEL [Suspect]
     Route: 048
  72. SEROQUEL [Suspect]
     Route: 048
  73. SEROQUEL [Suspect]
     Route: 048
     Dates: start: 20020101
  74. SEROQUEL [Suspect]
     Route: 048
     Dates: start: 20020101
  75. SEROQUEL [Suspect]
     Route: 048
  76. SEROQUEL [Suspect]
     Route: 048
  77. SEROQUEL [Suspect]
     Route: 048
  78. SEROQUEL [Suspect]
     Route: 048
     Dates: start: 20120201
  79. SEROQUEL [Suspect]
     Route: 048
  80. NEXIUM [Suspect]
     Indication: GASTROOESOPHAGEAL REFLUX DISEASE
     Route: 048
     Dates: start: 20110101
  81. ATENOLOL [Concomitant]
     Indication: CARDIAC DISORDER
     Route: 048
  82. DEPAKOTE [Concomitant]
     Indication: EPILEPSY
     Route: 048
  83. VIMPAC [Concomitant]
     Indication: EPILEPSY
     Route: 048
  84. ZINC SULFATE [Concomitant]
     Indication: MINERAL SUPPLEMENTATION
     Route: 048
  85. ZANTAC [Concomitant]
     Dosage: 150 MG, TWO TIMES A DAY
     Route: 048
  86. PRISTIQ [Concomitant]
     Indication: NERVOUS SYSTEM DISORDER
     Route: 048
  87. POTASSIUM CHLORIDE [Concomitant]
  88. FERROUS SULFATE TAB [Concomitant]
  89. SEROQUEL [Suspect]
     Indication: BIPOLAR DISORDER
     Route: 048
     Dates: start: 19930101
  90. SEROQUEL [Suspect]
     Route: 048
     Dates: start: 20020101
  91. SEROQUEL [Suspect]
     Route: 048
     Dates: start: 20020101
  92. SEROQUEL [Suspect]
     Route: 048
  93. SEROQUEL [Suspect]
     Route: 048
  94. SEROQUEL [Suspect]
     Route: 048
     Dates: start: 20120201
  95. SEROQUEL [Suspect]
     Route: 048
  96. SEROQUEL [Suspect]
     Route: 048
  97. SEROQUEL [Suspect]
     Route: 048
  98. SEROQUEL [Suspect]
     Route: 048
  99. SEROQUEL [Suspect]
     Route: 048
  100. TENORMIN [Concomitant]
  101. VITAMIN TAB [Concomitant]
  102. SEROQUEL [Suspect]
     Indication: SCHIZOPHRENIA
     Route: 048
     Dates: start: 19930101
  103. SEROQUEL [Suspect]
     Route: 048
  104. SEROQUEL [Suspect]
     Route: 048
     Dates: start: 20020101
  105. SEROQUEL [Suspect]
     Route: 048
  106. SEROQUEL [Suspect]
     Route: 048
  107. SEROQUEL [Suspect]
     Route: 048
  108. SEROQUEL [Suspect]
     Route: 048
  109. SEROQUEL [Suspect]
     Route: 048
  110. NEXIUM [Suspect]
     Route: 048
  111. CLONAZEPAM [Concomitant]
  112. LASIX [Concomitant]
  113. SEROQUEL [Suspect]
     Indication: PERSONALITY DISORDER
     Route: 048
     Dates: start: 19930101
  114. SEROQUEL [Suspect]
     Route: 048
     Dates: start: 19940101
  115. SEROQUEL [Suspect]
     Route: 048
  116. SEROQUEL [Suspect]
     Route: 048
  117. SEROQUEL [Suspect]
     Route: 048
  118. SEROQUEL [Suspect]
     Route: 048
     Dates: start: 20120201
  119. SEROQUEL [Suspect]
     Route: 048
  120. SEROQUEL [Suspect]
     Route: 048
  121. SEROQUEL [Suspect]
     Route: 048
  122. NEXIUM [Suspect]
     Indication: ULCER
     Route: 048
     Dates: start: 20110101
  123. HYDROXYZINE [Concomitant]
  124. TANZANADINE [Concomitant]
     Dosage: THREE TIMES A DAY
     Route: 048
  125. POTASSIUM CHLORIDE [Concomitant]

REACTIONS (26)
  - BIPOLAR DISORDER [None]
  - FALL [None]
  - DISSOCIATIVE IDENTITY DISORDER [None]
  - LIGAMENT RUPTURE [None]
  - INSOMNIA [None]
  - ULCER [None]
  - TENDON RUPTURE [None]
  - DEPRESSION [None]
  - WEIGHT DECREASED [None]
  - FEELING ABNORMAL [None]
  - UPPER LIMB FRACTURE [None]
  - SCHIZOPHRENIA, PARANOID TYPE [None]
  - IMPAIRED DRIVING ABILITY [None]
  - VOMITING [None]
  - INCORRECT DOSE ADMINISTERED [None]
  - OFF LABEL USE [None]
  - MYOCARDIAL INFARCTION [None]
  - EPILEPSY [None]
  - CARDIAC DISORDER [None]
  - ABDOMINAL PAIN UPPER [None]
  - HALLUCINATION, AUDITORY [None]
  - INTENTIONAL DRUG MISUSE [None]
  - ADVERSE EVENT [None]
  - CLAVICLE FRACTURE [None]
  - GASTROOESOPHAGEAL REFLUX DISEASE [None]
  - HALLUCINATION, VISUAL [None]
